FAERS Safety Report 7806289-0 (Version None)
Quarter: 2011Q4

REPORT INFORMATION
  Report Type: 
  Country: None (occurrence: None)
  Receive Date: 20111011
  Receipt Date: 20111006
  Transmission Date: 20120403
  Serious: Yes (Other)
  Sender: FDA-Public Use
  Company Number: US-PFIZER INC-2011054359

PATIENT
  Sex: Male

DRUGS (2)
  1. CHANTIX [Suspect]
     Indication: SMOKING CESSATION THERAPY
     Dosage: STARTER PACK
     Dates: start: 20090420, end: 20090429
  2. DIVALPROEX SODIUM [Concomitant]
     Indication: CONVULSION
     Dosage: UNK
     Dates: start: 19980101

REACTIONS (2)
  - INJURY [None]
  - AGGRESSION [None]
